FAERS Safety Report 15010589 (Version 1)
Quarter: 2018Q2

REPORT INFORMATION
  Report Type: Spontaneous
  Country: CA (occurrence: CA)
  Receive Date: 20180529
  Receipt Date: 20180529
  Transmission Date: 20180711
  Serious: Yes (Disabling)
  Sender: FDA-Public Use
  Company Number: None

PATIENT
  Age: 46 Year
  Sex: Female
  Weight: 81 kg

DRUGS (3)
  1. TEVA-AMOXICILLIN [Suspect]
     Active Substance: AMOXICILLIN
     Indication: PHARYNGITIS STREPTOCOCCAL
     Dosage: ?          QUANTITY:1 CAPSULE(S);?
     Route: 048
  2. METFORMIN [Concomitant]
     Active Substance: METFORMIN HYDROCHLORIDE
  3. NOVORAPID INSULIN [Concomitant]

REACTIONS (1)
  - Arthralgia [None]

NARRATIVE: CASE EVENT DATE: 20180527
